FAERS Safety Report 4645441-2 (Version None)
Quarter: 2005Q2

REPORT INFORMATION
  Report Type: 
  Country: None (occurrence: None)
  Receive Date: 20050426
  Receipt Date: 20050422
  Transmission Date: 20051028
  Serious: Yes (Hospitalization)
  Sender: FDA-Public Use
  Company Number: FR-MERCK-0504FRA00067

PATIENT
  Age: 84 Year
  Sex: Male

DRUGS (8)
  1. NOROXIN [Suspect]
     Route: 048
     Dates: end: 20050227
  2. ASPIRIN [Suspect]
     Route: 048
     Dates: end: 20050227
  3. ACETYLCYSTEINE [Suspect]
     Route: 048
     Dates: end: 20050227
  4. PRAZOSIN [Concomitant]
     Indication: HYPERTENSION
     Route: 048
  5. NICARDIPINE HYDROCHLORIDE [Concomitant]
     Indication: HYPERTENSION
     Route: 048
  6. CLOBAZAM [Concomitant]
     Indication: ANXIETY
     Route: 048
  7. PHENOBARBITAL [Concomitant]
     Route: 048
  8. CARBAMAZEPINE [Concomitant]
     Route: 048

REACTIONS (1)
  - THROMBOCYTOPENIC PURPURA [None]
